FAERS Safety Report 7556872-5 (Version None)
Quarter: 2011Q2

REPORT INFORMATION
  Report Type: 
  Country: None (occurrence: None)
  Receive Date: 20110620
  Receipt Date: 20110609
  Transmission Date: 20111010
  Serious: Yes (Hospitalization)
  Sender: FDA-Public Use
  Company Number: PE-MEDIMMUNE-MEDI-0013249

PATIENT
  Sex: Male

DRUGS (4)
  1. FERROUS SULFATE TAB [Concomitant]
     Dates: start: 20110413, end: 20110525
  2. SYNAGIS [Suspect]
     Route: 030
     Dates: start: 20110413, end: 20110413
  3. KAPSOVIT [Concomitant]
     Dates: start: 20110413, end: 20110525
  4. OXYGEN [Concomitant]
     Route: 055
     Dates: start: 20110518, end: 20110522

REACTIONS (6)
  - NASAL CONGESTION [None]
  - INFLUENZA [None]
  - COUGH [None]
  - OXYGEN SATURATION DECREASED [None]
  - VIRAL UPPER RESPIRATORY TRACT INFECTION [None]
  - RESPIRATORY DISTRESS [None]
